FAERS Safety Report 4888038-1 (Version None)
Quarter: 2006Q1

REPORT INFORMATION
  Report Type: 
  Country: None (occurrence: None)
  Receive Date: 20060123
  Receipt Date: 20051005
  Transmission Date: 20060701
  Serious: Yes (Hospitalization)
  Sender: FDA-Public Use
  Company Number: US-MERCK-0510USA04629

PATIENT
  Age: 64 Year
  Sex: Male
  Weight: 86 kg

DRUGS (4)
  1. VIOXX [Suspect]
     Indication: OSTEOARTHRITIS
     Route: 048
     Dates: start: 20030101, end: 20040903
  2. VIOXX [Suspect]
     Route: 048
     Dates: start: 20030101, end: 20040903
  3. ZOCOR [Concomitant]
     Route: 065
  4. FLEXERIL [Concomitant]
     Route: 065

REACTIONS (9)
  - AORTIC VALVE INCOMPETENCE [None]
  - BLOOD HOMOCYSTEINE INCREASED [None]
  - BRONCHITIS [None]
  - CARDIAC MURMUR [None]
  - CARDIOVASCULAR DISORDER [None]
  - NEPHROLITHIASIS [None]
  - SPINAL COLUMN STENOSIS [None]
  - SPINAL DISORDER [None]
  - TENDON RUPTURE [None]
